FAERS Safety Report 9991383 (Version 1)
Quarter: 2014Q1

REPORT INFORMATION
  Report Type: Spontaneous
  Country: US (occurrence: US)
  Receive Date: 20140310
  Receipt Date: 20140310
  Transmission Date: 20141002
  Serious: Yes (Hospitalization)
  Sender: FDA-Public Use
  Company Number: US-MYLANLABS-2014S1004532

PATIENT
  Age: 34 Year
  Sex: Male

DRUGS (3)
  1. ZONISAMIDE [Suspect]
     Dosage: 100MG AT BEDTIME, THEN 300MG AT BEDTIME
     Route: 065
  2. ZONISAMIDE [Interacting]
     Dosage: 300MG AT BEDTIME
     Route: 065
  3. PHENYTOIN [Interacting]
     Dosage: 300MG EVERY MORNING, 400MG AT BEDTIME
     Route: 065

REACTIONS (11)
  - Toxicity to various agents [Unknown]
  - Psychotic disorder [Recovered/Resolved]
  - Nystagmus [Recovering/Resolving]
  - Hyperreflexia [Recovering/Resolving]
  - Drug interaction [Recovered/Resolved]
  - Gait disturbance [Unknown]
  - Dizziness [Unknown]
  - Fatigue [Unknown]
  - Sleep disorder [Unknown]
  - Disturbance in attention [Unknown]
  - Palpitations [Unknown]
